FAERS Safety Report 4354606-9 (Version None)
Quarter: 2004Q2

REPORT INFORMATION
  Report Type: 
  Country: None (occurrence: None)
  Receive Date: 20040506
  Receipt Date: 20040506
  Transmission Date: 20050107
  Serious: Yes (Other)
  Sender: FDA-Public Use
  Company Number: None

PATIENT
  Sex: Female
  Weight: 83.9154 kg

DRUGS (5)
  1. ZOLOFT [Suspect]
     Indication: FEAR
     Dosage: 50 MG ONCE DAILY ORAL
     Route: 048
     Dates: start: 20020501, end: 20040301
  2. ZOLOFT [Suspect]
     Indication: HEADACHE
     Dosage: 50 MG ONCE DAILY ORAL
     Route: 048
     Dates: start: 20020501, end: 20040301
  3. ZOLOFT [Suspect]
     Indication: MALAISE
     Dosage: 50 MG ONCE DAILY ORAL
     Route: 048
     Dates: start: 20020501, end: 20040301
  4. ZOLOFT [Suspect]
     Indication: POSTPARTUM STATE
     Dosage: 50 MG ONCE DAILY ORAL
     Route: 048
     Dates: start: 20020501, end: 20040301
  5. ZOLOFT [Suspect]
     Indication: STRESS SYMPTOMS
     Dosage: 50 MG ONCE DAILY ORAL
     Route: 048
     Dates: start: 20020501, end: 20040301

REACTIONS (4)
  - ANXIETY [None]
  - CRYING [None]
  - DIZZINESS [None]
  - HEADACHE [None]
